FAERS Safety Report 12784357 (Version 1)
Quarter: 2016Q3

REPORT INFORMATION
  Report Type: Report from Study
  Country: DE (occurrence: DE)
  Receive Date: 20160927
  Receipt Date: 20160927
  Transmission Date: 20161109
  Serious: Yes (Other)
  Sender: FDA-Public Use
  Company Number: DE-BEH-RHO/04/05/LIT

PATIENT
  Age: 54 Year
  Sex: Male

DRUGS (3)
  1. RHOPHYLAC [Suspect]
     Active Substance: HUMAN RHO(D) IMMUNE GLOBULIN
  2. RHOPHYLAC [Suspect]
     Active Substance: HUMAN RHO(D) IMMUNE GLOBULIN
     Dosage: DAILY DOSE QUANTITY: 50, DAILY DOSE UNIT: UG/KG
     Route: 058
  3. RHOPHYLAC [Suspect]
     Active Substance: HUMAN RHO(D) IMMUNE GLOBULIN
     Indication: IMMUNE THROMBOCYTOPENIC PURPURA
     Dosage: DAILY DOSE QUANTITY: 50, DAILY DOSE UNIT: UG/KG
     Route: 042

REACTIONS (4)
  - Back pain [Unknown]
  - Pyrexia [Unknown]
  - Haemoglobinuria [Recovered/Resolved]
  - Chills [Unknown]
